FAERS Safety Report 8367821-4 (Version None)
Quarter: 2012Q2

REPORT INFORMATION
  Report Type: 
  Country: None (occurrence: None)
  Receive Date: 20120517
  Receipt Date: 20120508
  Transmission Date: 20120825
  Serious: Yes (Hospitalization)
  Sender: FDA-Public Use
  Company Number: JP-VERTEX PHARMACEUTICALS INC.-AE-2012-006840

PATIENT
  Age: 62 Year
  Sex: Female

DRUGS (5)
  1. PEGINTERFERON ALFA-2B [Concomitant]
     Indication: HEPATITIS C
     Route: 051
     Dates: start: 20120229, end: 20120318
  2. RIBAVIRIN [Concomitant]
     Indication: HEPATITIS C
     Route: 048
     Dates: start: 20120229, end: 20120318
  3. MOHRUS TAPE [Concomitant]
     Route: 061
     Dates: start: 20120228
  4. TELAVIC (TELAPREVIR) [Suspect]
     Indication: HEPATITIS C
     Route: 048
     Dates: start: 20120302, end: 20120318
  5. POSTERISAN [Concomitant]
     Route: 061
     Dates: start: 20120305

REACTIONS (2)
  - MELAENA [None]
  - LOSS OF CONSCIOUSNESS [None]
